FAERS Safety Report 23212914 (Version 1)
Quarter: 2023Q4

REPORT INFORMATION
  Report Type: Spontaneous
  Country: FR (occurrence: FR)
  Receive Date: 20231121
  Receipt Date: 20231121
  Transmission Date: 20240110
  Serious: Yes (Hospitalization)
  Sender: FDA-Public Use
  Company Number: None

PATIENT
  Age: 50 Year
  Sex: Female

DRUGS (3)
  1. AMOXICILLIN [Suspect]
     Active Substance: AMOXICILLIN
     Indication: Bacterial infection
     Dosage: UNK
     Dates: start: 20230515, end: 20230515
  2. DOLIPRANE [Suspect]
     Active Substance: ACETAMINOPHEN
     Indication: Pain
     Dosage: UNK
     Dates: start: 20230515, end: 20230515
  3. ARTICAINE\EPINEPHRINE [Suspect]
     Active Substance: ARTICAINE\EPINEPHRINE
     Indication: Dental local anaesthesia
     Dosage: 1 INJECTION AT 10:00 A.M. , ARTICAINE HYDROCHLORIDE 4% ADRENALINEE AT 1/200,000 HENRI SCHILLER
     Dates: start: 20230515, end: 20230515

REACTIONS (1)
  - Erythema [Recovered/Resolved]

NARRATIVE: CASE EVENT DATE: 20230515
